FAERS Safety Report 21194345 (Version 2)
Quarter: 2022Q3

REPORT INFORMATION
  Report Type: Spontaneous
  Country: DE (occurrence: DE)
  Receive Date: 20220810
  Receipt Date: 20220820
  Transmission Date: 20221027
  Serious: Yes (Other)
  Sender: FDA-Public Use
  Company Number: DE-EMA-DD-20220725-225465-170156

PATIENT
  Age: 28 Year
  Sex: Male

DRUGS (6)
  1. DIAZEPAM [Suspect]
     Active Substance: DIAZEPAM
     Indication: Psychotherapy
     Dosage: 20 MILLIGRAM DAILY; 10 MG, BID, UNIT DOSE: 20 MG, FREQUENCY TIME-1 DAY,
  2. HALOPERIDOL [Suspect]
     Active Substance: HALOPERIDOL
     Indication: Psychotherapy
     Dosage: 10 MILLIGRAM DAILY; 5 MG, BID, UNIT DOSE: 10 MG, FREQUENCY TIME-1 DAY
  3. ARIPIPRAZOLE [Suspect]
     Active Substance: ARIPIPRAZOLE
     Indication: Schizophrenia
     Dosage: 400 MG, MONTHLY
  4. ARIPIPRAZOLE [Suspect]
     Active Substance: ARIPIPRAZOLE
     Indication: Schizophrenia
  5. ARIPIPRAZOLE [Suspect]
     Active Substance: ARIPIPRAZOLE
     Indication: Adjuvant therapy
     Dosage: 10 MILLIGRAM DAILY; 10 MG, QD
  6. ARIPIPRAZOLE [Suspect]
     Active Substance: ARIPIPRAZOLE
     Dosage: 20 MILLIGRAM DAILY; 20 MG, QD

REACTIONS (4)
  - Anxiety [Unknown]
  - Akathisia [Not Recovered/Not Resolved]
  - Irritability [Unknown]
  - Restlessness [Unknown]
